FAERS Safety Report 6877170-9 (Version None)
Quarter: 2010Q3

REPORT INFORMATION
  Report Type: 
  Country: None (occurrence: None)
  Receive Date: 20100727
  Receipt Date: 20100719
  Transmission Date: 20110219
  Serious: Yes (Hospitalization)
  Sender: FDA-Public Use
  Company Number: GB-ABBOTT-10P-167-0658556-00

PATIENT
  Age: 41 Year
  Sex: Female

DRUGS (10)
  1. VALPROATE SODIUM [Suspect]
     Indication: PRODUCT USED FOR UNKNOWN INDICATION
     Dosage: INTENTIONAL OVERDOSE
  2. VALPROATE SODIUM [Suspect]
     Indication: INTENTIONAL OVERDOSE
  3. CLONAZEPAM [Suspect]
     Indication: PRODUCT USED FOR UNKNOWN INDICATION
     Dosage: INTENTIONAL OVERDOSE
  4. CLONAZEPAM [Suspect]
     Indication: INTENTIONAL OVERDOSE
  5. OXAZEPAM [Suspect]
     Indication: PRODUCT USED FOR UNKNOWN INDICATION
     Dosage: INTENTIONAL OVERDOSE
  6. OXAZEPAM [Suspect]
     Indication: INTENTIONAL OVERDOSE
  7. PROPRANOLOL [Suspect]
     Indication: PRODUCT USED FOR UNKNOWN INDICATION
     Dosage: INTENTIONAL OVERDOSE
  8. PROPRANOLOL [Suspect]
     Indication: INTENTIONAL OVERDOSE
  9. FLUPENTHIXOL DIHYDROCHLORIDE [Suspect]
     Indication: PRODUCT USED FOR UNKNOWN INDICATION
     Dosage: INTENTIONAL OVERDOSE
  10. FLUPENTHIXOL DIHYDROCHLORIDE [Suspect]
     Indication: INTENTIONAL OVERDOSE

REACTIONS (7)
  - AGITATION [None]
  - BRADYCARDIA [None]
  - DISORIENTATION [None]
  - DRUG TOXICITY [None]
  - HYPERAMMONAEMIA [None]
  - METABOLIC ENCEPHALOPATHY [None]
  - MULTIPLE DRUG OVERDOSE INTENTIONAL [None]
